FAERS Safety Report 15969375 (Version 2)
Quarter: 2019Q1

REPORT INFORMATION
  Report Type: Spontaneous
  Country: NL (occurrence: NL)
  Receive Date: 20190215
  Receipt Date: 20190226
  Transmission Date: 20190418
  Serious: Yes (Hospitalization)
  Sender: FDA-Public Use
  Company Number: NL-TEVA-2019-NL-1011735

PATIENT
  Age: 0 Week
  Sex: Male
  Weight: 3 kg

DRUGS (1)
  1. CLOMIPRAMINE TABLET MET GEREGULEERDE AFGIFTE, 75 MG (MILLIGRAM) [Suspect]
     Active Substance: CLOMIPRAMINE
     Indication: ANXIETY DISORDER
     Dosage: 225 MILLIGRAM DAILY; 1DD 3 TABLETS OF 75MG
     Route: 065

REACTIONS (2)
  - Maternal exposure during pregnancy [Unknown]
  - Hypertonia neonatal [Recovering/Resolving]

NARRATIVE: CASE EVENT DATE: 20190110
